FAERS Safety Report 16056583 (Version 1)
Quarter: 2019Q2

REPORT INFORMATION
  Report Type: Spontaneous
  Country: US (occurrence: US)
  Receive Date: 20190310
  Receipt Date: 20190310
  Transmission Date: 20190711
  Serious: Yes (Other)
  Sender: FDA-Public Use
  Company Number: None

PATIENT
  Age: 51 Year
  Sex: Male
  Weight: 96.75 kg

DRUGS (10)
  1. LYRICA [Concomitant]
     Active Substance: PREGABALIN
  2. CLONAZEPAM. [Concomitant]
     Active Substance: CLONAZEPAM
  3. HYDROXYZINE [Concomitant]
     Active Substance: HYDROXYZINE HYDROCHLORIDE
  4. METOPOLOL [Concomitant]
  5. INGREZZA [Suspect]
     Active Substance: VALBENAZINE
     Indication: TARDIVE DYSKINESIA
     Dosage: ?          QUANTITY:60 CAPSULE(S);?
     Route: 048
  6. MORPHINE [Concomitant]
     Active Substance: MORPHINE
  7. TAMSULOSIN [Concomitant]
     Active Substance: TAMSULOSIN
  8. LAMOTRIGINE. [Concomitant]
     Active Substance: LAMOTRIGINE
  9. PLAVIX [Concomitant]
     Active Substance: CLOPIDOGREL BISULFATE
  10. DEXTROAMPHETAMINE. [Concomitant]
     Active Substance: DEXTROAMPHETAMINE

REACTIONS (2)
  - Product dose omission [None]
  - Urticaria [None]

NARRATIVE: CASE EVENT DATE: 20190210
